FAERS Safety Report 22320424 (Version 2)
Quarter: 2023Q2

REPORT INFORMATION
  Report Type: Spontaneous
  Country: GB (occurrence: GB)
  Receive Date: 20230515
  Receipt Date: 20230519
  Transmission Date: 20230721
  Serious: Yes (Other)
  Sender: FDA-Public Use
  Company Number: GB-ADVANZ PHARMA-202305003495

PATIENT

DRUGS (3)
  1. ZONEGRAN [Suspect]
     Active Substance: ZONISAMIDE
     Indication: Seizure
     Dosage: 250 MG, BID ZONEGRAN MERCURY PHARMA (MERCURY PHARMA (200 MG MERCURY PHARMA + 50 MG EISAI IN THE MORN
     Dates: start: 20230425
  2. ZONEGRAN [Suspect]
     Active Substance: ZONISAMIDE
     Indication: Seizure
     Dosage: UNK, ZONEGRAN (EISAI, SINCE 10 YEARS)
  3. ZONEGRAN [Suspect]
     Active Substance: ZONISAMIDE
     Indication: Seizure
     Dosage: 250 MG, BID ZONEGRAN EISAI (200 MG MERCURY PHARMA + 50 MG (EISAI IN THE MORNING/NIGHT)
     Dates: start: 20230425

REACTIONS (4)
  - Epilepsy [Not Recovered/Not Resolved]
  - Rash [Not Recovered/Not Resolved]
  - Product availability issue [Unknown]
  - Product substitution issue [Unknown]

NARRATIVE: CASE EVENT DATE: 20230401
